FAERS Safety Report 7674346-8 (Version None)
Quarter: 2011Q3

REPORT INFORMATION
  Report Type: 
  Country: None (occurrence: None)
  Receive Date: 20110808
  Receipt Date: 20110505
  Transmission Date: 20111222
  Serious: Yes (Other)
  Sender: FDA-Public Use
  Company Number: JPI-P-016117

PATIENT
  Age: 39 Year
  Sex: Female
  Weight: 65.7716 kg

DRUGS (8)
  1. XYREM [Suspect]
     Indication: FIBROMYALGIA
     Dosage: UNKNOWN, 2 IN 1 D) ORAL
     Route: 048
     Dates: start: 20060701
  2. CLONAZEPAM [Concomitant]
  3. OXYCONTIN [Concomitant]
  4. FIORICET (ACETAMINOPHEN) [Concomitant]
  5. KETOROLAC TROMETHAMINE [Concomitant]
  6. PERCOCET (OXYCODONE AND ACETAMINEPHEN) [Concomitant]
  7. TOPAMAX [Concomitant]
  8. PHENERGAN [Concomitant]

REACTIONS (2)
  - FUNGAL INFECTION [None]
  - BURNS THIRD DEGREE [None]
